FAERS Safety Report 5406904-5 (Version None)
Quarter: 2007Q3

REPORT INFORMATION
  Report Type: 
  Country: None (occurrence: None)
  Receive Date: 20070807
  Receipt Date: 20070731
  Transmission Date: 20080115
  Serious: No
  Sender: FDA-Public Use
  Company Number: CZ-BAXTER-2007BH005408

PATIENT
  Age: 26 Month
  Sex: Male
  Weight: 11 kg

DRUGS (1)
  1. IMMUNE GLOBULIN INTRAVENOUS (HUMAN) [Suspect]
     Indication: KAWASAKI'S DISEASE
     Dosage: 4.5 G APPLIED FROM THE TOTAL 10 G
     Route: 042
     Dates: start: 20070522, end: 20070522

REACTIONS (2)
  - ANAPHYLACTIC SHOCK [None]
  - CONDITION AGGRAVATED [None]
